FAERS Safety Report 5371451-6 (Version None)
Quarter: 2007Q2

REPORT INFORMATION
  Report Type: 
  Country: None (occurrence: None)
  Receive Date: 20070622
  Receipt Date: 20070614
  Transmission Date: 20071010
  Serious: Yes (Other)
  Sender: FDA-Public Use
  Company Number: 2007-01882

PATIENT
  Age: 50 Year
  Sex: Female
  Weight: 62.2 kg

DRUGS (10)
  1. VELCADE [Suspect]
     Indication: MULTIPLE MYELOMA
     Dosage: 1.30 MG/M2, IV BOLUS
     Route: 040
     Dates: start: 20070605, end: 20070608
  2. VORINOSTA(SUBEROYLANIL HYDROXAMIC ACID) ORAL DRUG UNSPECIFIED FORM [Suspect]
     Indication: MULTIPLE MYELOMA
     Dosage: 500.00 MG, ORAL
     Route: 048
     Dates: start: 20070608, end: 20070608
  3. GEODON [Concomitant]
  4. HYDROCHLOROTHIAZIDE [Concomitant]
  5. LITHIUM CARBONATE [Concomitant]
  6. MORPHINE [Concomitant]
  7. SILDENAFIL CITRATE [Concomitant]
  8. SYNTHROID [Concomitant]
  9. TRAZODONE HCL [Concomitant]
  10. QUETIAPINE FUMARATE [Concomitant]

REACTIONS (6)
  - DRUG TOXICITY [None]
  - DYSPNOEA [None]
  - ELECTROCARDIOGRAM QT CORRECTED INTERVAL PROLONGED [None]
  - NAUSEA [None]
  - PULMONARY HYPERTENSION [None]
  - VOMITING [None]
